FAERS Safety Report 15033686 (Version 1)
Quarter: 2018Q2

REPORT INFORMATION
  Report Type: Spontaneous
  Country: US (occurrence: US)
  Receive Date: 20180529
  Receipt Date: 20180529
  Transmission Date: 20180711
  Serious: No
  Sender: FDA-Public Use
  Company Number: None

PATIENT
  Age: 48 Year
  Sex: Female

DRUGS (10)
  1. CALTRATE [Concomitant]
     Active Substance: CALCIUM CARBONATE
  2. URSODIOL. [Concomitant]
     Active Substance: URSODIOL
  3. RIFAMPIN. [Concomitant]
     Active Substance: RIFAMPIN
  4. ASPIRIN. [Concomitant]
     Active Substance: ASPIRIN
  5. OMEPRA/ BICAR [Concomitant]
  6. SYNTHROID [Concomitant]
     Active Substance: LEVOTHYROXINE SODIUM
  7. OCALIVA [Suspect]
     Active Substance: OBETICHOLIC ACID
     Indication: PRIMARY BILIARY CHOLANGITIS
     Route: 048
     Dates: start: 20171213
  8. SENNA/DSS [Concomitant]
  9. ZANTAC [Concomitant]
     Active Substance: RANITIDINE HYDROCHLORIDE
  10. ATORVASTATIN [Concomitant]
     Active Substance: ATORVASTATIN

REACTIONS (1)
  - Pruritus [None]

NARRATIVE: CASE EVENT DATE: 20180522
